FAERS Safety Report 9874340 (Version 2)
Quarter: 2014Q1

REPORT INFORMATION
  Report Type: Spontaneous
  Country: US (occurrence: US)
  Receive Date: 20140206
  Receipt Date: 20140206
  Transmission Date: 20141002
  Serious: No
  Sender: FDA-Public Use
  Company Number: US-ACORDA-ACO_35184_2013

PATIENT
  Age: 55 Year
  Sex: Female

DRUGS (3)
  1. AMPYRA [Suspect]
     Indication: GAIT DISTURBANCE
     Dosage: 10 MG, Q 12 HRS
     Route: 065
     Dates: start: 20120430
  2. ZOLOFT [Suspect]
     Indication: DEPRESSION
     Dosage: 100 MG, QD
     Route: 048
  3. TERIFLUNOMIDE [Suspect]
     Indication: MULTIPLE SCLEROSIS
     Dosage: 14 MG, QD
     Route: 048
     Dates: start: 20130301, end: 20130617

REACTIONS (1)
  - Arthralgia [Recovered/Resolved]
